FAERS Safety Report 22038881 (Version 2)
Quarter: 2023Q1

REPORT INFORMATION
  Report Type: Spontaneous
  Country: US (occurrence: US)
  Receive Date: 20230227
  Receipt Date: 20230321
  Transmission Date: 20230418
  Serious: No
  Sender: FDA-Public Use
  Company Number: US-PHARMING-PHAUS2023000146

PATIENT

DRUGS (2)
  1. RUCONEST [Suspect]
     Active Substance: HUMAN C1-ESTERASE INHIBITOR
     Indication: Hereditary angioedema
     Dosage: 4200 IU, THREE TIMES WEEKLY AS A SLOW INTRAVENOUS INJECTION OVER FIVE MINUTES
     Route: 042
     Dates: start: 20220308
  2. RUCONEST [Suspect]
     Active Substance: HUMAN C1-ESTERASE INHIBITOR
     Dosage: 4200 IU,  THREE TIMES WEEKLY AS A SLOW INTRAVENOUS INJECTION OVER FIVE MINUTES
     Route: 042
     Dates: start: 20220308

REACTIONS (4)
  - Condition aggravated [Unknown]
  - Stress [Unknown]
  - Sensitivity to weather change [Unknown]
  - Intentional product use issue [Unknown]
